FAERS Safety Report 13247839 (Version 1)
Quarter: 2017Q1

REPORT INFORMATION
  Report Type: Spontaneous
  Country: US (occurrence: US)
  Receive Date: 20170217
  Receipt Date: 20170217
  Transmission Date: 20170428
  Serious: No
  Sender: FDA-Public Use
  Company Number: US-SHIRE-US201703347

PATIENT
  Age: 37 Year
  Sex: Female
  Weight: 75.28 kg

DRUGS (1)
  1. XIIDRA [Suspect]
     Active Substance: LIFITEGRAST
     Indication: DRY EYE
     Dosage: 1 GTT, (EACH EYE) 2X/DAY:BID
     Route: 047
     Dates: start: 20170215

REACTIONS (3)
  - Instillation site irritation [Recovered/Resolved]
  - Paranasal sinus discomfort [Not Recovered/Not Resolved]
  - Instillation site reaction [Recovered/Resolved]

NARRATIVE: CASE EVENT DATE: 20170215
